FAERS Safety Report 6972739-5 (Version None)
Quarter: 2010Q3

REPORT INFORMATION
  Report Type: 
  Country: None (occurrence: None)
  Receive Date: 20100909
  Receipt Date: 20100826
  Transmission Date: 20110219
  Serious: Yes (Death, Other)
  Sender: FDA-Public Use
  Company Number: MX-GENZYME-CLOF-1001176

PATIENT
  Sex: Female
  Weight: 165 kg

DRUGS (14)
  1. CLOLAR [Suspect]
     Indication: ACUTE LEUKAEMIA
     Dosage: UNK
     Dates: start: 20100819, end: 20100819
  2. FLUCONAZOLE [Concomitant]
     Indication: PROPHYLAXIS
     Dosage: 100 MG, QD
     Dates: start: 20100818, end: 20100822
  3. CEFEPIME [Concomitant]
     Indication: FEBRILE NEUTROPENIA
     Dosage: 2 G, QDX3
     Dates: start: 20100818, end: 20100822
  4. OMEPRAZOLE [Concomitant]
     Indication: GASTRITIS
     Dosage: 20 MG, QD
     Dates: start: 20100816, end: 20100822
  5. LYSINE [Concomitant]
     Indication: PAIN IN EXTREMITY
     Dosage: 1 UNK, UNK
     Dates: start: 20100808, end: 20100822
  6. ACETAMINOPHEN [Concomitant]
     Indication: PYREXIA
     Dosage: 1 G, UNK
     Dates: start: 20100810, end: 20100819
  7. SENNOSIDE [Concomitant]
     Indication: CONSTIPATION
     Dosage: 2 OTHER, UNK
     Dates: start: 20100810, end: 20100819
  8. HYDROCORTISONE [Concomitant]
     Indication: PROPHYLAXIS
     Dosage: 200 MG, QDX3
     Dates: start: 20100818, end: 20100822
  9. METRONIDAZOLE [Concomitant]
     Indication: NEUTROPENIC COLITIS
     Dosage: 500 MG, QDX3
  10. VANCOMYCIN [Concomitant]
     Indication: FEBRILE NEUTROPENIA
     Dosage: 1 G, UNK
     Dates: start: 20100821, end: 20100822
  11. FUROSEMIDE [Concomitant]
     Indication: POLYURIA
     Dosage: 20 MG, UNK
     Dates: start: 20100821, end: 20100822
  12. PREDNISONE [Concomitant]
     Indication: UNEVALUABLE EVENT
     Dosage: 100 MG, UNK
     Dates: start: 20100812, end: 20100818
  13. CEFTAZIDIME [Concomitant]
     Indication: FEBRILE NEUTROPENIA
     Dosage: 2 G, QDX3
     Dates: start: 20100731, end: 20100810
  14. AMIKACIN [Concomitant]
     Indication: FEBRILE NEUTROPENIA
     Dosage: 1 G, QD
     Dates: start: 20100731, end: 20100810

REACTIONS (6)
  - CARDIO-RESPIRATORY ARREST [None]
  - HEPATIC FAILURE [None]
  - HYPOTENSION [None]
  - NEUTROPENIC COLITIS [None]
  - OLIGURIA [None]
  - TACHYCARDIA [None]
